FAERS Safety Report 17591396 (Version 1)
Quarter: 2020Q1

REPORT INFORMATION
  Report Type: Report from Study
  Country: CO (occurrence: CO)
  Receive Date: 20200327
  Receipt Date: 20200327
  Transmission Date: 20200409
  Serious: Yes (Other)
  Sender: FDA-Public Use
  Company Number: CO-ROCHE-2424224

PATIENT
  Age: 64 Year
  Sex: Female
  Weight: 90 kg

DRUGS (1)
  1. ACTEMRA [Suspect]
     Active Substance: TOCILIZUMAB
     Indication: RHEUMATOID ARTHRITIS
     Route: 065

REACTIONS (20)
  - Blood cholesterol increased [Unknown]
  - Erythema [Unknown]
  - Gait inability [Unknown]
  - Neoplasm malignant [Unknown]
  - Dizziness [Unknown]
  - Anxiety [Unknown]
  - Pain [Unknown]
  - Overweight [Unknown]
  - Cough [Unknown]
  - Malaise [Unknown]
  - Headache [Unknown]
  - Mobility decreased [Unknown]
  - Gastritis [Unknown]
  - Amnesia [Unknown]
  - Inflammation [Unknown]
  - Suicidal behaviour [Unknown]
  - Asthenia [Unknown]
  - Gait disturbance [Unknown]
  - Peripheral swelling [Unknown]
  - Skin fissures [Unknown]
